FAERS Safety Report 9060874 (Version 2)
Quarter: 2013Q2

REPORT INFORMATION
  Report Type: Spontaneous
  Country: US (occurrence: US)
  Receive Date: 20130204
  Receipt Date: 20130417
  Transmission Date: 20140414
  Serious: Yes (Death)
  Sender: FDA-Public Use
  Company Number: US-ELI_LILLY_AND_COMPANY-US201301009807

PATIENT
  Sex: Female
  Weight: 54.4 kg

DRUGS (1)
  1. GEMZAR [Suspect]
     Indication: PANCREATIC CARCINOMA
     Dosage: 1540 MG, SINGLE
     Route: 042
     Dates: start: 20120229, end: 20120229

REACTIONS (1)
  - Death [Fatal]
